FAERS Safety Report 11314904 (Version 1)
Quarter: 2015Q3

REPORT INFORMATION
  Report Type: Other
  Country: IT (occurrence: IT)
  Receive Date: 20150727
  Receipt Date: 20150727
  Transmission Date: 20151125
  Serious: Yes (Other)
  Sender: FDA-Public Use
  Company Number: IT-MYLANLABS-2015M1024168

PATIENT

DRUGS (4)
  1. COUMADIN [Interacting]
     Active Substance: WARFARIN SODIUM
     Indication: ATRIAL FIBRILLATION
     Dosage: 36.25 MG WEEKLY
     Route: 048
     Dates: start: 20130611, end: 20150701
  2. FOLINA                             /00024201/ [Interacting]
     Active Substance: FOLIC ACID
     Indication: OSTEOMYELITIS CHRONIC
     Dosage: 15 MG DAILY
     Route: 048
     Dates: start: 20150624
  3. BACTRIM [Interacting]
     Active Substance: SULFAMETHOXAZOLE\TRIMETHOPRIM
     Indication: OSTEOMYELITIS CHRONIC
     Dosage: 2 DF DAILY
     Route: 048
     Dates: start: 20150624
  4. CIPROFLOXACIN HYDROCHLORIDE. [Suspect]
     Active Substance: CIPROFLOXACIN HYDROCHLORIDE
     Indication: OSTEOMYELITIS CHRONIC
     Dosage: 1 G DAILY
     Route: 048
     Dates: start: 20150624

REACTIONS (2)
  - International normalised ratio increased [Recovered/Resolved]
  - Drug interaction [Recovered/Resolved]

NARRATIVE: CASE EVENT DATE: 20150702
